FAERS Safety Report 21301682 (Version 3)
Quarter: 2023Q1

REPORT INFORMATION
  Report Type: Other
  Country: JP (occurrence: JP)
  Receive Date: 20220907
  Receipt Date: 20230118
  Transmission Date: 20230418
  Serious: Yes (Hospitalization)
  Sender: FDA-Public Use
  Company Number: JP-CHUGAI-2022034171

PATIENT
  Age: 88 Year
  Sex: Male
  Weight: 56.3 kg

DRUGS (6)
  1. EMICIZUMAB [Suspect]
     Active Substance: EMICIZUMAB
     Indication: Acquired haemophilia
     Route: 058
     Dates: start: 20220809, end: 20220809
  2. EMICIZUMAB [Suspect]
     Active Substance: EMICIZUMAB
     Route: 058
     Dates: start: 20220810, end: 20220810
  3. EMICIZUMAB [Suspect]
     Active Substance: EMICIZUMAB
     Route: 058
     Dates: start: 20220818, end: 20220915
  4. PREDNISOLONE [Suspect]
     Active Substance: PREDNISOLONE
     Indication: Product used for unknown indication
     Dosage: 3MG/DAY
     Route: 065
     Dates: end: 20220803
  5. PREDNISOLONE [Suspect]
     Active Substance: PREDNISOLONE
     Dosage: 25MG/DAY?MOST RECENT DOSE OF PREDNISOLONE: 13/NOV/2022
     Route: 065
     Dates: start: 20220804
  6. HUMAN RED BLOOD CELL [Concomitant]
     Active Substance: HUMAN RED BLOOD CELL
     Indication: Haemorrhage
     Dosage: 2 UT, SINGLE
     Route: 065
     Dates: start: 20220810, end: 20220810

REACTIONS (3)
  - Haemorrhage [Recovered/Resolved]
  - Pneumothorax [Recovered/Resolved]
  - Pleurisy bacterial [Recovered/Resolved]

NARRATIVE: CASE EVENT DATE: 20220826
